FAERS Safety Report 16271135 (Version 1)
Quarter: 2019Q2

REPORT INFORMATION
  Report Type: Spontaneous
  Country: BE (occurrence: BE)
  Receive Date: 20190503
  Receipt Date: 20190503
  Transmission Date: 20190711
  Serious: Yes (Hospitalization)
  Sender: FDA-Public Use
  Company Number: BE-BAUSCH-BL-2019-012350

PATIENT
  Sex: Female

DRUGS (4)
  1. ATOSIBAN [Suspect]
     Active Substance: ATOSIBAN
     Indication: POSTPONEMENT OF PRETERM DELIVERY
     Route: 065
  2. BETAMETHASONE. [Suspect]
     Active Substance: BETAMETHASONE
     Indication: MATERNAL THERAPY TO ENHANCE FOETAL LUNG MATURITY
     Route: 065
  3. LEVOTHYROXINE. [Concomitant]
     Active Substance: LEVOTHYROXINE
     Indication: HYPOTHYROIDISM
  4. NIFEDIPINE. [Suspect]
     Active Substance: NIFEDIPINE
     Indication: POSTPONEMENT OF PRETERM DELIVERY
     Route: 065

REACTIONS (3)
  - Off label use [Unknown]
  - Acute pulmonary oedema [Unknown]
  - Contraindicated product administered [Unknown]
